FAERS Safety Report 15479498 (Version 1)
Quarter: 2018Q4

REPORT INFORMATION
  Report Type: Report from Study
  Country: ES (occurrence: ES)
  Receive Date: 20181009
  Receipt Date: 20181009
  Transmission Date: 20190205
  Serious: Yes (Life-Threatening, Hospitalization)
  Sender: FDA-Public Use
  Company Number: ES-MYLANLABS-2018M1073824

PATIENT
  Age: 60 Year
  Sex: Male

DRUGS (3)
  1. DUPHALAC [Concomitant]
     Active Substance: LACTULOSE
     Indication: CONSTIPATION
     Dosage: 3.34 MG, UNK
     Route: 048
     Dates: start: 20170801, end: 20170924
  2. FUROSEMIDE. [Suspect]
     Active Substance: FUROSEMIDE
     Indication: HEPATIC CIRRHOSIS
     Dosage: 40 MG, QD
     Route: 048
     Dates: start: 20170601, end: 20170924
  3. ESPIRONOLACTONA [Interacting]
     Active Substance: SPIRONOLACTONE
     Indication: HEPATIC CIRRHOSIS
     Dosage: 150 MG, QD
     Route: 048
     Dates: start: 20170601, end: 20170924

REACTIONS (2)
  - Hyponatraemia [Recovering/Resolving]
  - Drug interaction [Unknown]

NARRATIVE: CASE EVENT DATE: 20170920
